FAERS Safety Report 8557097-7 (Version None)
Quarter: 2012Q3

REPORT INFORMATION
  Report Type: 
  Country: None (occurrence: None)
  Receive Date: 20120801
  Receipt Date: 20120727
  Transmission Date: 20120928
  Serious: Yes (Other)
  Sender: FDA-Public Use
  Company Number: US-ROCHE-1093880

PATIENT
  Sex: Male

DRUGS (4)
  1. PEGASYS [Suspect]
     Dates: end: 20120724
  2. BOCEPREVIR [Suspect]
     Indication: HEPATITIS C
     Dates: end: 20120724
  3. RIBAVIRIN [Suspect]
     Indication: HEPATITIS C
     Dates: start: 20120612, end: 20120724
  4. PEGASYS [Suspect]
     Indication: HEPATITIS C
     Dates: start: 20120612

REACTIONS (2)
  - BLINDNESS UNILATERAL [None]
  - PLATELET COUNT DECREASED [None]
